FAERS Safety Report 5638729-X (Version None)
Quarter: 2008Q1

REPORT INFORMATION
  Report Type: 
  Country: None (occurrence: None)
  Receive Date: 20080221
  Receipt Date: 20080221
  Transmission Date: 20080703
  Serious: Yes (Hospitalization)
  Sender: FDA-Public Use
  Company Number: None

PATIENT
  Age: 69 Year
  Sex: Male

DRUGS (1)
  1. WARFARIN SODIUM [Suspect]
     Indication: CARDIOMYOPATHY
     Dosage: 10MG DAILY PO
     Route: 048

REACTIONS (7)
  - EPISTAXIS [None]
  - HAEMORRHAGE [None]
  - HYPERCOAGULATION [None]
  - INJECTION SITE BRUISING [None]
  - INTERNATIONAL NORMALISED RATIO INCREASED [None]
  - TONGUE DISCOLOURATION [None]
  - URINARY TRACT INFECTION [None]
